FAERS Safety Report 6007094-0 (Version None)
Quarter: 2008Q4

REPORT INFORMATION
  Report Type: 
  Country: None (occurrence: None)
  Receive Date: 20081217
  Receipt Date: 20080110
  Transmission Date: 20090506
  Serious: No
  Sender: FDA-Public Use
  Company Number: US-ASTRAZENECA-2008UW00694

PATIENT
  Age: 65 Year
  Sex: Male

DRUGS (3)
  1. CRESTOR [Suspect]
     Route: 048
     Dates: start: 20080101
  2. MULTI-VITAMIN [Concomitant]
  3. FISH OIL [Concomitant]

REACTIONS (4)
  - ABDOMINAL DISTENSION [None]
  - HEADACHE [None]
  - PARAESTHESIA [None]
  - PARAESTHESIA ORAL [None]
